FAERS Safety Report 14118130 (Version 2)
Quarter: 2017Q4

REPORT INFORMATION
  Report Type: Report from Study
  Country: DE (occurrence: DE)
  Receive Date: 20171023
  Receipt Date: 20171107
  Transmission Date: 20180321
  Serious: Yes (Death, Hospitalization, Other)
  Sender: FDA-Public Use
  Company Number: PHHY2016DE152248

PATIENT
  Age: 77 Year
  Sex: Male
  Weight: 71 kg

DRUGS (13)
  1. EXJADE [Suspect]
     Active Substance: DEFERASIROX
     Dosage: 10.3 MG/KG, QD (2 TABLET 360 MG)
     Route: 048
     Dates: start: 20161121, end: 20161218
  2. VERAMEX [Concomitant]
     Active Substance: VERAPAMIL HYDROCHLORIDE
     Indication: AORTIC VALVE REPLACEMENT
     Dosage: 160 MG, BID
     Route: 065
     Dates: start: 20170511
  3. EXJADE [Suspect]
     Active Substance: DEFERASIROX
     Dosage: 14.1 MG/KG, QD (2 TABLETS A 500 MG )
     Route: 048
     Dates: start: 20161024, end: 20161120
  4. EXJADE [Suspect]
     Active Substance: DEFERASIROX
     Dosage: 4.7 MG/KG, BODYWEIGHT/DAY (1 TABLET A 360 MG)
     Route: 048
     Dates: start: 20161219, end: 20170113
  5. EXJADE [Suspect]
     Active Substance: DEFERASIROX
     Dosage: 4.7 MG/KG, QD (BODYWEIGHT/DAY=1)
     Route: 048
     Dates: start: 20170902
  6. EXJADE [Suspect]
     Active Substance: DEFERASIROX
     Dosage: 4.7 MG/KG, QD (FILM CAOTED TABLET)
     Route: 048
     Dates: start: 20170123, end: 20170817
  7. SIMVASTATIN. [Concomitant]
     Active Substance: SIMVASTATIN
     Indication: PRODUCT USED FOR UNKNOWN INDICATION
     Dosage: 20 MG, QD
     Route: 065
     Dates: start: 201310
  8. SAB SIMPLEX [Concomitant]
     Indication: PRODUCT USED FOR UNKNOWN INDICATION
     Dosage: 240 MG, QD (1-1-1)
     Route: 065
     Dates: start: 20170817
  9. AMLODIPINE [Concomitant]
     Active Substance: AMLODIPINE BESYLATE
     Indication: PRODUCT USED FOR UNKNOWN INDICATION
     Dosage: 0.5 MG, BID (2X/DAY)
     Route: 065
     Dates: start: 201310
  10. PANTOPRAZOLE [Concomitant]
     Active Substance: PANTOPRAZOLE
     Indication: PRODUCT USED FOR UNKNOWN INDICATION
     Dosage: 20 MG, QD
     Route: 048
     Dates: start: 20161017
  11. EXJADE [Suspect]
     Active Substance: DEFERASIROX
     Indication: MYELODYSPLASTIC SYNDROME
     Dosage: 7.0 MG/KG, QD (1TABLET A 500MG)
     Route: 048
     Dates: start: 20160905, end: 20161023
  12. VALPROATE [Concomitant]
     Active Substance: VALPROIC ACID
     Indication: MYELODYSPLASTIC SYNDROME
     Dosage: 500 MG, QD
     Route: 048
     Dates: start: 20160905
  13. ASPIRIN. [Concomitant]
     Active Substance: ASPIRIN
     Indication: PRODUCT USED FOR UNKNOWN INDICATION
     Dosage: 100 MG, QD (1X/D)
     Route: 065
     Dates: start: 201310

REACTIONS (15)
  - Thrombocytopenia [Recovering/Resolving]
  - Neutrophil count decreased [Recovering/Resolving]
  - Supraventricular tachycardia [Recovering/Resolving]
  - Anaemia [Recovered/Resolved]
  - Pyrexia [Recovered/Resolved]
  - Red blood cell count decreased [Unknown]
  - General physical health deterioration [Fatal]
  - Pyrexia [Recovered/Resolved]
  - General physical health deterioration [Recovered/Resolved]
  - Fatigue [Unknown]
  - Haemoglobin decreased [Unknown]
  - Infection [Recovered/Resolved]
  - Leukopenia [Recovering/Resolving]
  - Escherichia infection [Unknown]
  - Pyrexia [Not Recovered/Not Resolved]

NARRATIVE: CASE EVENT DATE: 20161006
